FAERS Safety Report 21178124 (Version 1)
Quarter: 2022Q3

REPORT INFORMATION
  Report Type: Spontaneous
  Country: US (occurrence: US)
  Receive Date: 20220805
  Receipt Date: 20220805
  Transmission Date: 20221027
  Serious: Yes (Life-Threatening, Hospitalization, Other)
  Sender: FDA-Public Use
  Company Number: US-MLMSERVICE-20220722-3691306-1

PATIENT
  Sex: Male

DRUGS (6)
  1. PREDNISOLONE [Suspect]
     Active Substance: PREDNISOLONE
     Indication: Sarcoidosis
     Dosage: 10 MILLIGRAM PER DAY (CHRONIC LOW-DOSE FROM 2-3 YEARS)
     Route: 048
     Dates: end: 2020
  2. PREDNISOLONE [Suspect]
     Active Substance: PREDNISOLONE
     Dosage: UNK, DOSE TAPER
     Route: 048
     Dates: start: 2020
  3. METHYLPREDNISOLONE [Suspect]
     Active Substance: METHYLPREDNISOLONE
     Indication: Sarcoidosis
     Dosage: UNK (PARENTERAL HIGH-DOSE)
     Route: 051
     Dates: start: 202006
  4. METHYLPREDNISOLONE [Suspect]
     Active Substance: METHYLPREDNISOLONE
     Dosage: UNK, ADDITIONAL PARENTERAL STEROIDS HIGH-DOSE
     Route: 051
     Dates: start: 2020
  5. AMOXICILLIN\CLAVULANIC ACID [Concomitant]
     Active Substance: AMOXICILLIN\CLAVULANIC ACID
     Indication: Sarcoidosis
     Dosage: UNK
     Route: 065
  6. AMOXICILLIN\CLAVULANIC ACID [Concomitant]
     Active Substance: AMOXICILLIN\CLAVULANIC ACID
     Indication: Pneumonia

REACTIONS (9)
  - Encephalopathy [Unknown]
  - Renal impairment [Unknown]
  - Pulmonary blastomycosis [Recovered/Resolved]
  - Osteomyelitis blastomyces [Recovered/Resolved]
  - Infection [Recovered/Resolved]
  - Blastomycosis [Recovered/Resolved]
  - Infection masked [Recovered/Resolved]
  - Disseminated blastomycosis [Recovered/Resolved]
  - Pneumonia bacterial [Unknown]

NARRATIVE: CASE EVENT DATE: 20200101
